FAERS Safety Report 6193188-6 (Version None)
Quarter: 2009Q2

REPORT INFORMATION
  Report Type: 
  Country: None (occurrence: None)
  Receive Date: 20090518
  Receipt Date: 20090505
  Transmission Date: 20091009
  Serious: Yes (Hospitalization)
  Sender: FDA-Public Use
  Company Number: A0757660A

PATIENT
  Age: 66 Year
  Sex: Male
  Weight: 100 kg

DRUGS (10)
  1. AVANDIA [Suspect]
     Dosage: 8MG PER DAY
     Route: 048
     Dates: start: 19990817, end: 20070501
  2. LOPRESSOR [Concomitant]
  3. ASPIRIN [Concomitant]
  4. PLAVIX [Concomitant]
  5. HYTRIN [Concomitant]
  6. NITROGLYCERIN [Concomitant]
  7. COREG CR [Concomitant]
  8. SIMVASTATIN [Concomitant]
  9. ZOCOR [Concomitant]
  10. LISINOPRIL [Concomitant]

REACTIONS (5)
  - ARTERIOSCLEROSIS CORONARY ARTERY [None]
  - CORONARY ARTERY DISEASE [None]
  - HYPERLIPIDAEMIA [None]
  - HYPERTENSION [None]
  - MYOCARDIAL INFARCTION [None]
